FAERS Safety Report 5209675-0 (Version None)
Quarter: 2006Q4

REPORT INFORMATION
  Report Type: 
  Country: None (occurrence: None)
  Receive Date: 20061122
  Receipt Date: 20060927
  Transmission Date: 20070319
  Serious: Yes (Other)
  Sender: FDA-Public Use
  Company Number: 2006117077

PATIENT

DRUGS (1)
  1. LIPITOR [Suspect]
     Dosage: (80 MG)

REACTIONS (1)
  - RHABDOMYOLYSIS [None]
